FAERS Safety Report 7488254-9 (Version None)
Quarter: 2011Q2

REPORT INFORMATION
  Report Type: 
  Country: None (occurrence: None)
  Receive Date: 20110518
  Receipt Date: 20110505
  Transmission Date: 20111010
  Serious: Yes (Death, Hospitalization, Other)
  Sender: FDA-Public Use
  Company Number: US-ELI_LILLY_AND_COMPANY-US201012001632

PATIENT
  Sex: Female
  Weight: 52.608 kg

DRUGS (31)
  1. RESTASIS [Concomitant]
  2. PROPRANOLOL [Concomitant]
  3. LEXAPRO [Concomitant]
  4. OXYCONTIN [Concomitant]
     Dosage: UNK, 2/D
  5. PREDNISONE [Concomitant]
  6. REMICADE [Concomitant]
     Dosage: UNK, EVERY 8 WEEKS
  7. RELAFEN [Concomitant]
  8. SPIRIVA [Concomitant]
  9. BENICAR [Concomitant]
  10. OMEPRAZOLE [Concomitant]
  11. FORTEO [Suspect]
     Dosage: 20 UG, DAILY (1/D)
     Route: 058
     Dates: end: 20110103
  12. POTASSIUM [Concomitant]
  13. NITROFURANTOIN [Concomitant]
  14. FORTEO [Suspect]
     Indication: OSTEOPOROSIS
     Dosage: 20 UG, DAILY (1/D)
     Route: 058
  15. ZOLPIDEM [Concomitant]
  16. LAMOTRIGINE [Concomitant]
  17. DIAZEPAM [Concomitant]
  18. OXYCONTIN [Concomitant]
     Dosage: 20 MG, 3/D
  19. FUROSEMIDE [Concomitant]
  20. METAMUCIL-2 [Concomitant]
  21. GABAPENTIN [Concomitant]
  22. OXYCONTIN [Concomitant]
     Dosage: 40 MG, 3/D
  23. PILOCARPINE [Concomitant]
  24. ACYCLOVIR [Concomitant]
  25. FOLIC ACID [Concomitant]
  26. METHOTREXATE [Concomitant]
  27. ADDERALL 10 [Concomitant]
  28. ASPIRIN [Concomitant]
     Dosage: 81 MG, UNK
  29. SIMVASTATIN [Concomitant]
  30. LOTEMAX [Concomitant]
  31. POLYETHYLENE GLYCOL [Concomitant]

REACTIONS (9)
  - COGNITIVE DISORDER [None]
  - DELUSION [None]
  - ANXIETY [None]
  - EXPIRED DRUG ADMINISTERED [None]
  - DELIRIUM [None]
  - PELVIC FRACTURE [None]
  - PAIN [None]
  - RHEUMATOID ARTHRITIS [None]
  - TRANSIENT ISCHAEMIC ATTACK [None]
